FAERS Safety Report 5225233-6 (Version None)
Quarter: 2007Q1

REPORT INFORMATION
  Report Type: 
  Country: None (occurrence: None)
  Receive Date: 20070131
  Receipt Date: 20070122
  Transmission Date: 20070707
  Serious: Yes (Other)
  Sender: FDA-Public Use
  Company Number: US-ROCHE-479678

PATIENT
  Sex: Female

DRUGS (3)
  1. BONIVA [Suspect]
     Indication: OSTEOPOROSIS
     Route: 048
     Dates: start: 20060415
  2. PRILOSEC [Concomitant]
     Dosage: THE NIGHT BEFORE EACH IBANDRONIC ACID DOSE.
     Route: 048
  3. VIT D [Concomitant]

REACTIONS (2)
  - CYSTITIS [None]
  - DIVERTICULITIS [None]
